FAERS Safety Report 23926154 (Version 1)
Quarter: 2024Q2

REPORT INFORMATION
  Report Type: Spontaneous
  Country: DE (occurrence: DE)
  Receive Date: 20240531
  Receipt Date: 20240531
  Transmission Date: 20240715
  Serious: Yes (Life-Threatening, Other)
  Sender: FDA-Public Use
  Company Number: DE-PFIZER INC-PV202400069961

PATIENT
  Age: 56 Year
  Sex: Female

DRUGS (6)
  1. SULFASALAZINE [Suspect]
     Active Substance: SULFASALAZINE
     Indication: Ulcer
     Dosage: UNK
     Dates: start: 1989
  2. SULFASALAZINE [Suspect]
     Active Substance: SULFASALAZINE
     Indication: Pyoderma gangrenosum
  3. CHLORAMBUCIL [Suspect]
     Active Substance: CHLORAMBUCIL
     Indication: Ulcer
     Dosage: UNK
     Dates: start: 1989
  4. CHLORAMBUCIL [Suspect]
     Active Substance: CHLORAMBUCIL
     Indication: Pyoderma gangrenosum
  5. DAPSONE [Suspect]
     Active Substance: DAPSONE
     Indication: Ulcer
     Dosage: UNK
     Dates: start: 1989
  6. DAPSONE [Suspect]
     Active Substance: DAPSONE
     Indication: Pyoderma gangrenosum

REACTIONS (2)
  - Drug ineffective for unapproved indication [Not Recovered/Not Resolved]
  - Off label use [Unknown]
